FAERS Safety Report 9883203 (Version 2)
Quarter: 2014Q1

REPORT INFORMATION
  Report Type: Spontaneous
  Country: US (occurrence: US)
  Receive Date: 20140208
  Receipt Date: 20140316
  Transmission Date: 20141002
  Serious: No
  Sender: FDA-Public Use
  Company Number: US-009507513-1402USA002299

PATIENT
  Age: 19 Year
  Sex: Female
  Weight: 53.9 kg

DRUGS (1)
  1. NEXPLANON [Suspect]
     Dosage: 68 MG,1 ROD EVERY THREE YEARS
     Route: 059
     Dates: start: 20131121

REACTIONS (2)
  - Device kink [Unknown]
  - No adverse event [Unknown]
